FAERS Safety Report 8247773-8 (Version None)
Quarter: 2012Q1

REPORT INFORMATION
  Report Type: 
  Country: None (occurrence: None)
  Receive Date: 20120330
  Receipt Date: 20120320
  Transmission Date: 20120608
  Serious: Yes (Death)
  Sender: FDA-Public Use
  Company Number: ES-MILLENNIUM PHARMACEUTICALS, INC.-2012-02024

PATIENT

DRUGS (17)
  1. PREDNISONE TAB [Concomitant]
     Indication: MULTIPLE MYELOMA
     Dosage: 100 MG, UNK
     Dates: start: 20120217
  2. ARANESP [Concomitant]
  3. CALCITRIOL [Concomitant]
  4. LEVOTHYROXINE SODIUM [Concomitant]
  5. CANDESARTAN CILEXETIL [Concomitant]
  6. ACYCLOVIR [Concomitant]
  7. TAMSULOSIN HCL [Concomitant]
  8. VELCADE [Suspect]
     Indication: MULTIPLE MYELOMA
     Dosage: 1.68 MG, UNK
     Route: 042
     Dates: start: 20120217
  9. MELPHALAN HYDROCHLORIDE [Concomitant]
     Indication: MULTIPLE MYELOMA
     Dosage: 16 MG, UNK
     Dates: start: 20120217
  10. OMEPRAZOLE [Concomitant]
  11. ENOXAPARIN SODIUM [Concomitant]
  12. CAOSINA [Concomitant]
  13. ATENOLOL [Concomitant]
  14. MYOLASTAM [Concomitant]
  15. ADALAT [Concomitant]
  16. SEGURIL                            /00032601/ [Concomitant]
  17. ZOMETA [Concomitant]
     Dosage: UNK

REACTIONS (1)
  - DEATH [None]
